FAERS Safety Report 24589238 (Version 1)
Quarter: 2024Q4

REPORT INFORMATION
  Report Type: Spontaneous
  Country: US (occurrence: US)
  Receive Date: 20241107
  Receipt Date: 20241107
  Transmission Date: 20250114
  Serious: No
  Sender: ABBVIE
  Company Number: US-ABBVIE-5982010

PATIENT

DRUGS (1)
  1. PHENYLEPHRINE HYDROCHLORIDE\PREDNISOLONE ACETATE [Suspect]
     Active Substance: PHENYLEPHRINE HYDROCHLORIDE\PREDNISOLONE ACETATE
     Indication: Product used for unknown indication
     Route: 047

REACTIONS (1)
  - No adverse event [Unknown]
